FAERS Safety Report 9148273 (Version 2)
Quarter: 2013Q1

REPORT INFORMATION
  Report Type: Spontaneous
  Country: US (occurrence: None)
  Receive Date: 20130206
  Receipt Date: 20130313
  Transmission Date: 20140127
  Serious: Yes (Death)
  Sender: FDA-Public Use
  Company Number: 2013-021

PATIENT
  Age: 56 Year
  Sex: Male
  Weight: 91.2 kg

DRUGS (7)
  1. FAZACLO ODT CLOZAPINE [Suspect]
     Indication: SCHIZOPHRENIA
     Route: 048
     Dates: start: 20080915, end: 20121105
  2. FAZACLO ODT CLOZAPINE [Suspect]
     Indication: SCHIZOAFFECTIVE DISORDER
     Route: 048
     Dates: start: 20080915, end: 20121105
  3. CLOZAPINE [Suspect]
     Indication: SCHIZOPHRENIA
     Route: 048
     Dates: start: 1993, end: 200809
  4. CLOZAPINE [Suspect]
     Indication: SCHIZOAFFECTIVE DISORDER
     Route: 048
     Dates: start: 1993, end: 200809
  5. DEPAKOTE ER (VALPROATE SEMISODIUM) [Concomitant]
  6. RISPERDAL CONSTA (RISPERIDONE) [Concomitant]
  7. BENZTROPINE MESYLATE [Suspect]

REACTIONS (1)
  - Acute myocardial infarction [None]
